FAERS Safety Report 9402886 (Version 1)
Quarter: 2013Q3

REPORT INFORMATION
  Report Type: Spontaneous
  Country: US (occurrence: None)
  Receive Date: 20130715
  Receipt Date: 20130715
  Transmission Date: 20140515
  Serious: Yes (Life-Threatening, Disabling, Other)
  Sender: FDA-Public Use
  Company Number: None

PATIENT
  Age: 56 Year
  Sex: Female
  Weight: 51.26 kg

DRUGS (3)
  1. CLINDAMYCIN [Suspect]
     Indication: VAGINAL INFECTION
     Dosage: 3-4 TIMES A DAY
     Route: 048
     Dates: start: 20120323, end: 20120323
  2. CLINDAMYCIN [Suspect]
     Dosage: 3-4 TIMES A DAY
     Route: 048
     Dates: start: 20120521, end: 20120528
  3. CLONAZEPAM [Concomitant]

REACTIONS (1)
  - Clostridium difficile infection [None]
